FAERS Safety Report 8004656-6 (Version None)
Quarter: 2011Q4

REPORT INFORMATION
  Report Type: 
  Country: None (occurrence: None)
  Receive Date: 20111219
  Receipt Date: 20111202
  Transmission Date: 20120403
  Serious: Yes (Other)
  Sender: FDA-Public Use
  Company Number: FK201102897

PATIENT
  Sex: Female

DRUGS (1)
  1. LETROZOLE [Suspect]
     Indication: BREAST CANCER
     Dates: start: 20100401

REACTIONS (4)
  - SPONDYLITIC MYELOPATHY [None]
  - MYELOMALACIA [None]
  - PARAESTHESIA [None]
  - ARTHRALGIA [None]
